FAERS Safety Report 12764159 (Version 1)
Quarter: 2016Q3

REPORT INFORMATION
  Report Type: Spontaneous
  Country: US (occurrence: US)
  Receive Date: 20160920
  Receipt Date: 20160920
  Transmission Date: 20161109
  Serious: Yes (Other)
  Sender: FDA-Public Use
  Company Number: US-HERITAGE PHARMACEUTICALS-2016HTG00231

PATIENT

DRUGS (3)
  1. NIFEDIPINE. [Suspect]
     Active Substance: NIFEDIPINE
  2. HYDROCHLOROTHIAZIDE. [Concomitant]
     Active Substance: HYDROCHLOROTHIAZIDE
     Route: 065
  3. CARVEDILOL. [Concomitant]
     Active Substance: CARVEDILOL
     Route: 065

REACTIONS (2)
  - Trigeminal neuralgia [Unknown]
  - Cerebrovascular accident [Unknown]
